FAERS Safety Report 24888330 (Version 2)
Quarter: 2025Q2

REPORT INFORMATION
  Report Type: Spontaneous
  Country: PH (occurrence: PH)
  Receive Date: 20250127
  Receipt Date: 20250605
  Transmission Date: 20250716
  Serious: Yes (Death)
  Sender: ALEXION PHARMACEUTICALS
  Company Number: PH-AstraZeneca-CH-00792427A

PATIENT

DRUGS (1)
  1. IMFINZI [Suspect]
     Active Substance: DURVALUMAB
     Indication: Hepatocellular carcinoma

REACTIONS (2)
  - Traumatic haemorrhage [Fatal]
  - Drug effect less than expected [Fatal]
